FAERS Safety Report 5214123-0 (Version None)
Quarter: 2007Q1

REPORT INFORMATION
  Report Type: 
  Country: None (occurrence: None)
  Receive Date: 20070122
  Receipt Date: 20070116
  Transmission Date: 20070707
  Serious: Yes (Disabling, Other)
  Sender: FDA-Public Use
  Company Number: 2006UW28157

PATIENT
  Sex: Female

DRUGS (1)
  1. ARIMIDEX [Suspect]
     Indication: BREAST CANCER
     Route: 048
     Dates: start: 20060601

REACTIONS (8)
  - ARTHRALGIA [None]
  - DEAFNESS [None]
  - FATIGUE [None]
  - INSOMNIA [None]
  - JOINT STIFFNESS [None]
  - PAIN [None]
  - TENDON DISORDER [None]
  - TENDON PAIN [None]
